FAERS Safety Report 10897115 (Version 1)
Quarter: 2015Q1

REPORT INFORMATION
  Report Type: Spontaneous
  Country: US (occurrence: None)
  Receive Date: 20150302
  Receipt Date: 20150302
  Transmission Date: 20150721
  Serious: Yes (Disabling)
  Sender: FDA-Public Use
  Company Number: None

PATIENT
  Age: 70 Year
  Sex: Female
  Weight: 68.04 kg

DRUGS (10)
  1. LEVOFLOXACIN. [Suspect]
     Active Substance: LEVOFLOXACIN
     Indication: PROPHYLAXIS
     Dosage: 5 PILLS ONCE DAILY TAKEN BY MOUTH
     Route: 048
     Dates: start: 20150204, end: 20150208
  2. VITAMIN B12 [Concomitant]
     Active Substance: CYANOCOBALAMIN
  3. FAMOTIDINE. [Concomitant]
     Active Substance: FAMOTIDINE
  4. GENERAL VITAMINS [Concomitant]
  5. ENDOCORT [Concomitant]
  6. LEVOFLOXACIN. [Suspect]
     Active Substance: LEVOFLOXACIN
     Indication: PNEUMONIA
     Dosage: 5 PILLS ONCE DAILY TAKEN BY MOUTH
     Route: 048
     Dates: start: 20150204, end: 20150208
  7. BUPROPION [Concomitant]
     Active Substance: BUPROPION
  8. CALCIUM WITH VITAMIN D [Concomitant]
     Active Substance: CALCIUM\VITAMIN D
  9. LEVOTHYROXINE [Concomitant]
     Active Substance: LEVOTHYROXINE
  10. VITAMIN C [Concomitant]
     Active Substance: ASCORBIC ACID

REACTIONS (6)
  - Tendon pain [None]
  - Abasia [None]
  - Pain in extremity [None]
  - Muscle disorder [None]
  - Walking aid user [None]
  - Dysstasia [None]

NARRATIVE: CASE EVENT DATE: 20150204
